FAERS Safety Report 7985489-3 (Version None)
Quarter: 2011Q4

REPORT INFORMATION
  Report Type: 
  Country: None (occurrence: None)
  Receive Date: 20111216
  Receipt Date: 20111110
  Transmission Date: 20120403
  Serious: No
  Sender: FDA-Public Use
  Company Number: US-ABBOTT-11P-163-0873053-00

PATIENT
  Sex: Male

DRUGS (3)
  1. VERSED [Concomitant]
     Indication: SEDATION
  2. NIMBEX [Suspect]
     Indication: PRODUCT USED FOR UNKNOWN INDICATION
     Dates: start: 20111101, end: 20111101
  3. FENTANYL [Concomitant]
     Indication: SEDATION

REACTIONS (1)
  - INCORRECT ROUTE OF DRUG ADMINISTRATION [None]
